FAERS Safety Report 5829100-6 (Version None)
Quarter: 2008Q3

REPORT INFORMATION
  Report Type: 
  Country: None (occurrence: None)
  Receive Date: 20080731
  Receipt Date: 20080729
  Transmission Date: 20090109
  Serious: Yes (Death)
  Sender: FDA-Public Use
  Company Number: DE-ASTRAZENECA-2008PK01678

PATIENT
  Sex: Female
  Weight: 80 kg

DRUGS (4)
  1. MERONEM [Suspect]
     Indication: PNEUMONIA ASPIRATION
     Route: 041
     Dates: start: 20080521, end: 20080605
  2. MERONEM [Suspect]
     Indication: CATHETER RELATED INFECTION
     Route: 041
     Dates: start: 20080521, end: 20080605
  3. MERONEM [Suspect]
     Route: 041
     Dates: start: 20080625, end: 20080704
  4. MERONEM [Suspect]
     Route: 041
     Dates: start: 20080625, end: 20080704

REACTIONS (1)
  - BONE MARROW FAILURE [None]
